FAERS Safety Report 21101756 (Version 2)
Quarter: 2022Q3

REPORT INFORMATION
  Report Type: Spontaneous
  Country: US (occurrence: US)
  Receive Date: 20220719
  Receipt Date: 20220728
  Transmission Date: 20221026
  Serious: No
  Sender: FDA-Public Use
  Company Number: US-BAYER-2022A101244

PATIENT
  Age: 9 Year
  Sex: Female

DRUGS (2)
  1. MIRALAX [Suspect]
     Active Substance: POLYETHYLENE GLYCOL 3350
     Indication: Gastrointestinal disorder
     Dosage: DOSE DOSE
     Route: 048
     Dates: start: 20220718, end: 20220718
  2. LAXATIVE STOOL SOFTENER WITH SENNA [Concomitant]

REACTIONS (3)
  - Headache [Recovered/Resolved with Sequelae]
  - Product odour abnormal [None]
  - Product taste abnormal [None]

NARRATIVE: CASE EVENT DATE: 20220718
